FAERS Safety Report 12241736 (Version 2)
Quarter: 2016Q2

REPORT INFORMATION
  Report Type: Spontaneous
  Country: IT (occurrence: IT)
  Receive Date: 20160406
  Receipt Date: 20160414
  Transmission Date: 20160815
  Serious: Yes (Other)
  Sender: FDA-Public Use
  Company Number: IT-TEVA-648710ACC

PATIENT
  Age: 59 Year
  Sex: Female

DRUGS (9)
  1. VALSARTAN. [Suspect]
     Active Substance: VALSARTAN
     Indication: DRUG ABUSE
     Dosage: 1680 MG TOTAL
     Route: 048
  2. LEVOFLOXACIN. [Suspect]
     Active Substance: LEVOFLOXACIN
     Indication: DRUG ABUSE
     Dosage: 5 DF TOTAL
     Route: 048
  3. SERTRALINE [Concomitant]
     Active Substance: SERTRALINE HYDROCHLORIDE
     Indication: SCHIZOPHRENIA
     Dosage: 50 MG
  4. XEPLION - 150 MG SOSPENSIONE INIETTABILE A RILASCIO PROLUNTATO [Concomitant]
     Indication: SCHIZOPHRENIA
     Dosage: 1 DF
     Route: 030
  5. OLANZAPINE. [Suspect]
     Active Substance: OLANZAPINE
     Indication: DRUG ABUSE
     Dosage: 700 MG TOTAL
  6. EUTIROX - 100 MICROGRAMMI COMPRESSE - MERCK SERONO S.P.A. [Suspect]
     Active Substance: LEVOTHYROXINE SODIUM
     Indication: DRUG ABUSE
     Dosage: 10 DF TOTAL
     Route: 048
  7. EUTIROX - 75 MICROGRAMMI COMPRESSE - MERCK SERONO S.P.A. [Suspect]
     Active Substance: LEVOTHYROXINE SODIUM
     Indication: DRUG ABUSE
     Dosage: 50 DF TOTAL
     Route: 048
  8. AMISULPRIDE [Suspect]
     Active Substance: AMISULPRIDE
     Indication: DRUG ABUSE
     Dosage: 2000 MG TOTAL
     Route: 048
  9. ZARELIS - 75 MG COMPRESSE A RILASCIO PROLUNGATO - ITALFARMACO S.P.A. [Suspect]
     Active Substance: VENLAFAXINE HYDROCHLORIDE
     Indication: DRUG ABUSE
     Dosage: 14 DF TOTAL
     Route: 048

REACTIONS (5)
  - Toxicity to various agents [Recovering/Resolving]
  - Drug abuse [Unknown]
  - Intentional self-injury [Recovering/Resolving]
  - Drug abuse [Recovering/Resolving]
  - Sopor [Recovering/Resolving]

NARRATIVE: CASE EVENT DATE: 20160114
